FAERS Safety Report 17688235 (Version 1)
Quarter: 2020Q2

REPORT INFORMATION
  Report Type: Spontaneous
  Country: US (occurrence: US)
  Receive Date: 20200420
  Receipt Date: 20200420
  Transmission Date: 20200714
  Serious: No
  Sender: FDA-Public Use
  Company Number: None

PATIENT
  Age: 84 Year
  Sex: Male
  Weight: 98.55 kg

DRUGS (14)
  1. XTANDI [Suspect]
     Active Substance: ENZALUTAMIDE
     Indication: PROSTATE CANCER
     Route: 048
     Dates: start: 20200317, end: 20200420
  2. PREDNISONE. [Concomitant]
     Active Substance: PREDNISONE
  3. ASPIRIN. [Concomitant]
     Active Substance: ASPIRIN
  4. LUPRON [Concomitant]
     Active Substance: LEUPROLIDE ACETATE
  5. VITAMIN D [Concomitant]
     Active Substance: VITAMIN D NOS
  6. TAMSULOSIN [Concomitant]
     Active Substance: TAMSULOSIN
  7. NORCO [Concomitant]
     Active Substance: ACETAMINOPHEN\HYDROCODONE BITARTRATE
  8. PREDNISONE. [Concomitant]
     Active Substance: PREDNISONE
  9. PROCHLORPERAZINE. [Concomitant]
     Active Substance: PROCHLORPERAZINE
  10. HYDROCORTISONE. [Concomitant]
     Active Substance: HYDROCORTISONE
  11. ZYTIGA [Concomitant]
     Active Substance: ABIRATERONE ACETATE
  12. MULTI VIT [Concomitant]
     Active Substance: VITAMINS
  13. ABIRATERONE. [Concomitant]
     Active Substance: ABIRATERONE ACETATE
  14. LORATIDINE [Concomitant]
     Active Substance: LORATADINE

REACTIONS (3)
  - Rash [None]
  - Fatigue [None]
  - Asthenia [None]

NARRATIVE: CASE EVENT DATE: 20200420
